FAERS Safety Report 7429489-0 (Version None)
Quarter: 2011Q2

REPORT INFORMATION
  Report Type: 
  Country: None (occurrence: None)
  Receive Date: 20110421
  Receipt Date: 20110414
  Transmission Date: 20111010
  Serious: Yes (Life-Threatening)
  Sender: FDA-Public Use
  Company Number: FR-SANOFI-AVENTIS-2011SA022804

PATIENT
  Age: 88 Year
  Sex: Male

DRUGS (8)
  1. LASIX [Concomitant]
  2. SERESTA [Concomitant]
  3. HEMIGOXINE NATIVELLE [Concomitant]
  4. DIFFU K [Concomitant]
  5. BIPRETERAX [Concomitant]
  6. ALFUZOSIN HYDROCHLORIDE [Concomitant]
  7. PLAVIX [Suspect]
     Indication: ATRIAL FIBRILLATION
     Route: 048
  8. STABLON [Concomitant]

REACTIONS (1)
  - ANAEMIA [None]
